FAERS Safety Report 10076890 (Version 2)
Quarter: 2014Q2

REPORT INFORMATION
  Report Type: Spontaneous
  Country: US (occurrence: US)
  Receive Date: 20140414
  Receipt Date: 20140422
  Transmission Date: 20141212
  Serious: No
  Sender: FDA-Public Use
  Company Number: US-009507513-1404USA001809

PATIENT
  Sex: Female
  Weight: 72.56 kg

DRUGS (9)
  1. OXYTROL FOR WOMEN [Suspect]
     Indication: URINARY INCONTINENCE
     Dosage: UNK, UNKNOWN
     Route: 062
     Dates: start: 20140309
  2. OXYTROL FOR WOMEN [Suspect]
     Indication: MICTURITION URGENCY
     Dosage: UNK, UNKNOWN
     Route: 062
     Dates: start: 20140309, end: 20140401
  3. CITALOPRAM [Concomitant]
     Indication: ANXIETY
     Dosage: 40 MG, QD
  4. PANTOPRAZOLE SODIUM [Concomitant]
     Indication: GASTROOESOPHAGEAL REFLUX DISEASE
     Dosage: 40 MG, QD
  5. BONIVA [Concomitant]
     Indication: BONE DENSITY ABNORMAL
     Dosage: UNK, UNKNOWN
  6. EQUATE VISION FORMULA [Concomitant]
     Indication: PRODUCT USED FOR UNKNOWN INDICATION
     Dosage: UNK, QD
  7. ALLERTEC [Concomitant]
     Indication: HYPERSENSITIVITY
     Dosage: UNK, QD
  8. ACETAMINOPHEN [Concomitant]
     Indication: ARTHRITIS
     Dosage: 650 MG, UNKNOWN
  9. ASPIRIN [Concomitant]
     Indication: PRODUCT USED FOR UNKNOWN INDICATION
     Dosage: UNK, QD

REACTIONS (2)
  - Inappropriate schedule of drug administration [Unknown]
  - Product packaging issue [Unknown]
